FAERS Safety Report 5832824-8 (Version None)
Quarter: 2008Q3

REPORT INFORMATION
  Report Type: 
  Country: None (occurrence: None)
  Receive Date: 20080731
  Receipt Date: 20080718
  Transmission Date: 20090109
  Serious: Yes (Death, Hospitalization, Other)
  Sender: FDA-Public Use
  Company Number: 2008001707

PATIENT
  Age: 68 Year
  Sex: Female

DRUGS (4)
  1. ERLOTINIB (ERLOTINIB) (TABLET) (ERLOTINIB) [Suspect]
     Indication: LUNG ADENOCARCINOMA
     Dosage: 150 MG, QD, ORAL
     Route: 048
     Dates: start: 20080520, end: 20080608
  2. ONEALFA [Concomitant]
  3. PHENYTOIN [Concomitant]
  4. THRYADIN (THYROID) [Concomitant]

REACTIONS (11)
  - ALANINE AMINOTRANSFERASE INCREASED [None]
  - ANOREXIA [None]
  - ASPARTATE AMINOTRANSFERASE INCREASED [None]
  - DIARRHOEA [None]
  - DISEASE PROGRESSION [None]
  - ENTEROCOLITIS INFECTIOUS [None]
  - EPILEPSY [None]
  - FATIGUE [None]
  - GENERAL PHYSICAL HEALTH DETERIORATION [None]
  - HYPOCALCAEMIA [None]
  - NAUSEA [None]
